FAERS Safety Report 8236134-3 (Version None)
Quarter: 2012Q1

REPORT INFORMATION
  Report Type: 
  Country: None (occurrence: None)
  Receive Date: 20120327
  Receipt Date: 20120313
  Transmission Date: 20120608
  Serious: No
  Sender: FDA-Public Use
  Company Number: US-BIOGENIDEC-2012BI006799

PATIENT
  Age: 37 Year
  Sex: Male

DRUGS (1)
  1. TYSABRI [Suspect]
     Indication: MULTIPLE SCLEROSIS
     Route: 042
     Dates: start: 20120119

REACTIONS (6)
  - FALL [None]
  - CHOKING [None]
  - FATIGUE [None]
  - BALANCE DISORDER [None]
  - COORDINATION ABNORMAL [None]
  - PERONEAL NERVE PALSY [None]
